FAERS Safety Report 4436819-0 (Version None)
Quarter: 2004Q3

REPORT INFORMATION
  Report Type: 
  Country: None (occurrence: None)
  Receive Date: 20040728
  Receipt Date: 20040609
  Transmission Date: 20050211
  Serious: No
  Sender: FDA-Public Use
  Company Number: TOS-000637

PATIENT
  Sex: Female

DRUGS (1)
  1. TOSITUMOMAB, IODINE, I 131) TOSITUMOMAB(TOSITUMOMAB, IODINE I 131 TOSI [Suspect]
     Indication: NON-HODGKIN'S LYMPHOMA
     Dosage: INTRAVENOUS
     Route: 042
     Dates: start: 20040301, end: 20040301

REACTIONS (2)
  - NAUSEA [None]
  - NECK MASS [None]
